FAERS Safety Report 5261145-X (Version None)
Quarter: 2007Q1

REPORT INFORMATION
  Report Type: 
  Country: None (occurrence: None)
  Receive Date: 20070309
  Receipt Date: 20070226
  Transmission Date: 20070707
  Serious: Yes (Death, Life-Threatening, Hospitalization, Disabling, Other)
  Sender: FDA-Public Use
  Company Number: DE-PFIZER INC-2006144651

PATIENT
  Sex: Female
  Weight: 58 kg

DRUGS (8)
  1. VFEND [Suspect]
     Indication: FUNGAL INFECTION
     Dosage: DAILY DOSE:500MG-FREQ:DAILY
     Route: 048
     Dates: start: 20051118, end: 20060421
  2. VFEND [Suspect]
     Indication: BRONCHOPULMONARY ASPERGILLOSIS
     Route: 042
  3. VFEND [Suspect]
     Indication: FUNGAL INFECTION
  4. VFEND [Suspect]
     Indication: BRONCHOPULMONARY ASPERGILLOSIS
  5. ALEXAN [Suspect]
     Indication: ACUTE MYELOID LEUKAEMIA
     Dosage: DAILY DOSE:40MG
     Dates: start: 20060213, end: 20060307
  6. ALL OTHER THERAPEUTIC PRODUCTS [Suspect]
     Dosage: TEXT:12GRAY
     Dates: start: 20060206, end: 20060301
  7. AMBISOME [Concomitant]
  8. CHEMOTHERAPY NOS [Concomitant]

REACTIONS (6)
  - APALLIC SYNDROME [None]
  - DEPRESSION [None]
  - ENCEPHALOPATHY [None]
  - LEUKAEMIA RECURRENT [None]
  - NAUSEA [None]
  - SOMNOLENCE [None]
